FAERS Safety Report 20840154 (Version 24)
Quarter: 2025Q4

REPORT INFORMATION
  Report Type: Report from Study
  Country: US (occurrence: US)
  Receive Date: 20220517
  Receipt Date: 20251230
  Transmission Date: 20260119
  Serious: Yes (Other)
  Sender: PFIZER
  Company Number: US-PFIZER INC-202200677350

PATIENT
  Age: 67 Year
  Sex: Female
  Weight: 116.12 kg

DRUGS (39)
  1. XELJANZ [Suspect]
     Active Substance: TOFACITINIB CITRATE
     Indication: Rheumatoid arthritis
     Dosage: 5 MG
  2. XELJANZ [Suspect]
     Active Substance: TOFACITINIB CITRATE
     Dosage: 5 MG, 1X/DAY
     Route: 048
  3. XELJANZ [Suspect]
     Active Substance: TOFACITINIB CITRATE
     Dosage: 5 MG, 2X/DAY
     Route: 048
  4. XELJANZ [Suspect]
     Active Substance: TOFACITINIB CITRATE
     Dosage: 5 MG
  5. AMLODIPINE BESYLATE [Concomitant]
     Active Substance: AMLODIPINE BESYLATE
     Indication: Blood pressure abnormal
     Dosage: 5 MG, 1X/DAY
  6. AVALIDE [Concomitant]
     Active Substance: HYDROCHLOROTHIAZIDE\IRBESARTAN
     Dosage: UNK
  7. BACTROBAN [Concomitant]
     Active Substance: MUPIROCIN CALCIUM
     Dosage: UNK
  8. VITAMIN B COMPLEX NOS [Concomitant]
     Active Substance: CYANOCOBALAMIN\PYRIDOXINE HYDROCHLORIDE\RIBOFLAVIN\SODIUM PANTOTHENATE\THIAMINE HYDROCHLORIDE\VITAMI
     Dosage: UNK
  9. CHOLECALCIFEROL [Concomitant]
     Active Substance: CHOLECALCIFEROL
     Dosage: UNK
  10. CLOBETASOL [Concomitant]
     Active Substance: CLOBETASOL
     Dosage: UNK
  11. CYMBALTA [Concomitant]
     Active Substance: DULOXETINE HYDROCHLORIDE
     Dosage: UNK
  12. GABAPENTIN [Concomitant]
     Active Substance: GABAPENTIN
     Dosage: UNK
  13. IRBESARTAN [Concomitant]
     Active Substance: IRBESARTAN
     Dosage: UNK
  14. HYDROCHLOROTHIAZIDE\IRBESARTAN [Concomitant]
     Active Substance: HYDROCHLOROTHIAZIDE\IRBESARTAN
     Indication: Blood pressure abnormal
     Dosage: 300 MG, 1X/DAY
  15. IRON [Concomitant]
     Active Substance: IRON
     Dosage: UNK
  16. JANUVIA [Concomitant]
     Active Substance: SITAGLIPTIN PHOSPHATE
     Indication: Diabetes mellitus
     Dosage: UNK
  17. LANTUS [Concomitant]
     Active Substance: INSULIN GLARGINE
     Dosage: UNK
  18. LANTUS SOLOSTAR [Concomitant]
     Active Substance: INSULIN GLARGINE
     Dosage: UNK
  19. LEVEMIR [Concomitant]
     Active Substance: INSULIN DETEMIR
     Indication: Diabetes mellitus
     Dosage: UNK
  20. METFORMIN [Concomitant]
     Active Substance: METFORMIN HYDROCHLORIDE
     Indication: Diabetes mellitus
     Dosage: 500 MG, 2X/DAY
  21. METFORMIN HYDROCHLORIDE [Concomitant]
     Active Substance: METFORMIN HYDROCHLORIDE
     Dosage: 100
  22. METOPROLOL [Concomitant]
     Active Substance: METOPROLOL
     Dosage: UNK
  23. METOPROLOL TARTRATE [Concomitant]
     Active Substance: METOPROLOL TARTRATE
     Indication: Blood pressure abnormal
     Dosage: UNK, 2X/DAY
  24. NORVASC [Concomitant]
     Active Substance: AMLODIPINE BESYLATE
     Dosage: UNK
  25. NOVOLOG [Concomitant]
     Active Substance: INSULIN ASPART
     Indication: Diabetes mellitus
     Dosage: UNK
  26. PRAVASTATIN [Concomitant]
     Active Substance: PRAVASTATIN
     Dosage: UNK
  27. PRAVASTATIN SODIUM [Concomitant]
     Active Substance: PRAVASTATIN SODIUM
     Dosage: UNK
  28. PREDNISONE [Concomitant]
     Active Substance: PREDNISONE
     Dosage: UNK
  29. PREVACID [Concomitant]
     Active Substance: LANSOPRAZOLE
     Dosage: UNK
  30. FISH OIL [Concomitant]
     Active Substance: FISH OIL
     Dosage: UNK
  31. SOLIFENACIN [Concomitant]
     Active Substance: SOLIFENACIN
     Indication: Bladder disorder
     Dosage: 10 MG
  32. SOLIFENACIN [Concomitant]
     Active Substance: SOLIFENACIN
     Dosage: UNK
  33. TRAMADOL [Concomitant]
     Active Substance: TRAMADOL
     Indication: Pain
     Dosage: 50 MG, AS NEEDED
  34. TRAMADOL [Concomitant]
     Active Substance: TRAMADOL
     Dosage: ER 100MG
  35. AMLODIPINE [Concomitant]
     Active Substance: AMLODIPINE BESYLATE
     Dosage: UNK
  36. VITAMIN D NOS [Concomitant]
     Active Substance: CHOLECALCIFEROL\ERGOCALCIFEROL
     Dosage: 1000
  37. HYDROCHLOROTHIAZIDE [Concomitant]
     Active Substance: HYDROCHLOROTHIAZIDE
     Dosage: UNK
  38. LANSOPRAZOLE [Concomitant]
     Active Substance: LANSOPRAZOLE
     Dosage: UNK
  39. TRESIBA [Concomitant]
     Active Substance: INSULIN DEGLUDEC
     Dosage: 100 IU

REACTIONS (11)
  - Condition aggravated [Unknown]
  - Mental impairment [Unknown]
  - Pain [Unknown]
  - Gait inability [Unknown]
  - Crying [Unknown]
  - Hypersensitivity [Recovering/Resolving]
  - Throat irritation [Unknown]
  - COVID-19 [Unknown]
  - Nasopharyngitis [Unknown]
  - Off label use [Unknown]
  - Product prescribing error [Unknown]
